FAERS Safety Report 12136757 (Version 1)
Quarter: 2016Q1

REPORT INFORMATION
  Report Type: Spontaneous
  Country: US (occurrence: None)
  Receive Date: 20160301
  Receipt Date: 20160301
  Transmission Date: 20160526
  Serious: Yes (Life-Threatening, Hospitalization)
  Sender: FDA-Public Use
  Company Number: None

PATIENT
  Age: 37 Year
  Sex: Male
  Weight: 91.63 kg

DRUGS (11)
  1. LISINOPRIL 40MG LUPIN 90 TABS. WALGREEN (WHP) WHI [Suspect]
     Active Substance: LISINOPRIL
     Indication: ANGIOEDEMA
     Route: 048
     Dates: start: 20140816, end: 20160207
  2. CARVEDILOL. [Concomitant]
     Active Substance: CARVEDILOL
  3. ACETAMINOPHEN. [Concomitant]
     Active Substance: ACETAMINOPHEN
  4. AMLODIPINE [Concomitant]
     Active Substance: AMLODIPINE BESYLATE
  5. SEVELAMER [Concomitant]
     Active Substance: SEVELAMER
  6. SENSIPAR [Concomitant]
     Active Substance: CINACALCET HYDROCHLORIDE
  7. OMEPRAZOLE. [Concomitant]
     Active Substance: OMEPRAZOLE
  8. METOCLOPRAMIDE. [Concomitant]
     Active Substance: METOCLOPRAMIDE
  9. HYDRALAZINE [Concomitant]
     Active Substance: HYDRALAZINE HYDROCHLORIDE
  10. GEMFIBROZIL 600MG RPH LOLOFT [Suspect]
     Active Substance: GEMFIBROZIL
     Indication: DIALYSIS
     Dosage: 1 PILL TWICE DAILY TAKEN BY MOUTH
     Route: 048
     Dates: start: 20160118, end: 20160208
  11. MULTIVITAMIN [Concomitant]
     Active Substance: VITAMINS

REACTIONS (1)
  - Swollen tongue [None]

NARRATIVE: CASE EVENT DATE: 20160208
